FAERS Safety Report 17167559 (Version 3)
Quarter: 2020Q1

REPORT INFORMATION
  Report Type: Spontaneous
  Country: JP (occurrence: JP)
  Receive Date: 20191217
  Receipt Date: 20200117
  Transmission Date: 20200409
  Serious: Yes (Other)
  Sender: FDA-Public Use
  Company Number: JP-GLAXOSMITHKLINE-JP2019JPN228626

PATIENT
  Age: 67 Year
  Sex: Female

DRUGS (4)
  1. LIVALO TABLETS [Concomitant]
     Dosage: 4 MG, 1D
     Dates: start: 201809
  2. RELVAR ELLIPTA [Suspect]
     Active Substance: FLUTICASONE FUROATE\VILANTEROL TRIFENATATE
     Indication: BRONCHITIS CHRONIC
     Dosage: 2 DF, 1D
     Route: 055
     Dates: start: 20181024, end: 201912
  3. RELVAR ELLIPTA [Suspect]
     Active Substance: FLUTICASONE FUROATE\VILANTEROL TRIFENATATE
     Indication: ASTHMA
  4. ALLEGRA TABLETS [Concomitant]
     Dosage: 60 MG, BID
     Dates: start: 200106

REACTIONS (4)
  - Overdose [Unknown]
  - Oesophageal candidiasis [Unknown]
  - Oral candidiasis [Unknown]
  - Breath odour [Unknown]

NARRATIVE: CASE EVENT DATE: 20181024
